FAERS Safety Report 5056876-0 (Version None)
Quarter: 2006Q3

REPORT INFORMATION
  Report Type: 
  Country: None (occurrence: None)
  Receive Date: 20060721
  Receipt Date: 20060712
  Transmission Date: 20061208
  Serious: Yes (Other)
  Sender: FDA-Public Use
  Company Number: PHBS2006AU10569

PATIENT
  Age: 27 Year
  Sex: Female

DRUGS (4)
  1. OXYTOCIN [Suspect]
     Dosage: 5 IU, UNK
     Route: 042
  2. BUPIVACAINE [Concomitant]
  3. FENTANYL TRANSDERMAL SYSTEM [Concomitant]
     Dosage: 15 UG, UNK
  4. PHENYLEPHRINE [Concomitant]

REACTIONS (4)
  - BLOOD PRESSURE SYSTOLIC DECREASED [None]
  - BROAD LIGAMENT HAEMATOMA [None]
  - CHEST PAIN [None]
  - HAEMOGLOBIN DECREASED [None]
